FAERS Safety Report 4314280-4 (Version None)
Quarter: 2004Q1

REPORT INFORMATION
  Report Type: 
  Country: None (occurrence: None)
  Receive Date: 20040308
  Receipt Date: 20040301
  Transmission Date: 20041129
  Serious: Yes (Hospitalization)
  Sender: FDA-Public Use
  Company Number: 2004UW01911

PATIENT
  Age: 55 Year
  Sex: Female

DRUGS (2)
  1. SEROQUEL [Suspect]
     Indication: AFFECTIVE DISORDER
     Dosage: 300 MG HS PO
     Route: 048
     Dates: start: 20031014, end: 20031219
  2. KLONOPIN [Concomitant]

REACTIONS (2)
  - CARDIAC ARREST [None]
  - PALPITATIONS [None]
